FAERS Safety Report 10907664 (Version 2)
Quarter: 2015Q1

REPORT INFORMATION
  Report Type: Other
  Country: US (occurrence: US)
  Receive Date: 20150312
  Receipt Date: 20150330
  Transmission Date: 20150721
  Serious: Yes (Other)
  Sender: FDA-Public Use
  Company Number: US-ENDO PHARMACEUTICALS INC.-PRIM20140008

PATIENT
  Sex: Male

DRUGS (2)
  1. PROPRANOLOL HCL TABLETS [Concomitant]
     Active Substance: PROPRANOLOL HYDROCHLORIDE
     Indication: ESSENTIAL TREMOR
     Route: 048
     Dates: start: 2004
  2. PRIMIDONE TABLETS 50MG [Suspect]
     Active Substance: PRIMIDONE
     Indication: ESSENTIAL TREMOR
     Route: 048
     Dates: start: 20141105, end: 20141105

REACTIONS (9)
  - Vomiting [Recovered/Resolved]
  - Activities of daily living impaired [Recovered/Resolved]
  - Dizziness [Recovered/Resolved]
  - Drug prescribing error [None]
  - Hallucination [Recovered/Resolved]
  - Seizure [Recovered/Resolved]
  - Vision blurred [Recovered/Resolved]
  - Vertigo [Recovered/Resolved]
  - Drug interaction [None]

NARRATIVE: CASE EVENT DATE: 20141106
